FAERS Safety Report 8144167-0 (Version None)
Quarter: 2012Q1

REPORT INFORMATION
  Report Type: 
  Country: None (occurrence: None)
  Receive Date: 20120217
  Receipt Date: 20120214
  Transmission Date: 20120608
  Serious: Yes (Death)
  Sender: FDA-Public Use
  Company Number: MY-PFIZER INC-2012038988

PATIENT
  Age: 51 Year
  Sex: Female

DRUGS (1)
  1. ZYVOX [Suspect]
     Indication: STAPHYLOCOCCAL INFECTION
     Dosage: 1 G, 1X/DAY
     Route: 042
     Dates: start: 20110304

REACTIONS (1)
  - THROMBOCYTOPENIA [None]
